FAERS Safety Report 8235868-4 (Version None)
Quarter: 2012Q1

REPORT INFORMATION
  Report Type: 
  Country: None (occurrence: None)
  Receive Date: 20120326
  Receipt Date: 20120325
  Transmission Date: 20120608
  Serious: No
  Sender: FDA-Public Use
  Company Number: US-PFIZER INC-2012076624

PATIENT
  Sex: Female
  Weight: 78.458 kg

DRUGS (4)
  1. OXYGEN [Concomitant]
     Dosage: UNK
  2. CHANTIX [Suspect]
     Dosage: 1 MG, 2X/DAY
     Route: 048
     Dates: start: 20120301
  3. CHANTIX [Suspect]
     Indication: SMOKING CESSATION THERAPY
     Dosage: 0.5 MG, 1X/DAY
     Route: 048
     Dates: start: 20120317, end: 20120301
  4. LUNESTA [Concomitant]
     Indication: INSOMNIA
     Dosage: UNK

REACTIONS (1)
  - DYSGEUSIA [None]
